FAERS Safety Report 7659711-7 (Version None)
Quarter: 2011Q3

REPORT INFORMATION
  Report Type: 
  Country: None (occurrence: None)
  Receive Date: 20110802
  Receipt Date: 20110727
  Transmission Date: 20111222
  Serious: Yes (Other)
  Sender: FDA-Public Use
  Company Number: A0938476A

PATIENT
  Age: 43 Year
  Sex: Male

DRUGS (1)
  1. UREA PEROXIDE [Suspect]
     Dosage: /AURAL

REACTIONS (1)
  - DEAFNESS UNILATERAL [None]
